FAERS Safety Report 18366040 (Version 1)
Quarter: 2020Q4

REPORT INFORMATION
  Report Type: Spontaneous
  Country: CN (occurrence: CN)
  Receive Date: 20201009
  Receipt Date: 20201009
  Transmission Date: 20210114
  Serious: Yes (Hospitalization, Other)
  Sender: FDA-Public Use
  Company Number: CN-BAXTER-2020BAX020626

PATIENT
  Age: 79 Year
  Sex: Male
  Weight: 59 kg

DRUGS (9)
  1. FAMAXIN (EPIRUBICIN HYDROCHLORIDE) [Suspect]
     Active Substance: EPIRUBICIN HYDROCHLORIDE
     Indication: DIFFUSE LARGE B-CELL LYMPHOMA
     Dosage: MINI R-CHOP REGIMEN, FAMAXIN 60 MG + 0.9% SODIUM CHLORIDE 100 ML
     Route: 041
     Dates: start: 20200905, end: 20200905
  2. PREDNISONE ACETATE [Suspect]
     Active Substance: PREDNISONE ACETATE
     Indication: DIFFUSE LARGE B-CELL LYMPHOMA
     Dosage: DOSAGE FORM: TABLET, MINI R-CHOP REGIMEN
     Route: 048
     Dates: start: 20200905, end: 20200907
  3. ENDOXAN [Suspect]
     Active Substance: CYCLOPHOSPHAMIDE
     Indication: DIFFUSE LARGE B-CELL LYMPHOMA
     Dosage: MINI R-CHOP REGIMEN, ENDOXAN 0.6 G + 0.9% SODIUM CHLORIDE 100 ML
     Route: 041
     Dates: start: 20200905, end: 20200905
  4. SODIUM CHLORIDE. [Suspect]
     Active Substance: SODIUM CHLORIDE
     Dosage: MINI R-CHOP REGIMEN, MABTHERA 0.6 G + 0.9% SODIUM CHLORIDE 100 ML
     Route: 041
     Dates: start: 20200905, end: 20200905
  5. SODIUM CHLORIDE. [Suspect]
     Active Substance: SODIUM CHLORIDE
     Dosage: MINI R-CHOP REGIMEN, FAMAXIN 60 MG + 0.9% SODIUM CHLORIDE 100 ML
     Route: 042
     Dates: start: 20200905, end: 20200905
  6. 0.9% SODIUM CHLORIDE INJECTION [Suspect]
     Active Substance: SODIUM CHLORIDE
     Indication: MEDICATION DILUTION
     Dosage: MINI R-CHOP REGIMEN, VINCRISTINE SULFATE 2 MG + 0.9% SODIUM CHLORIDE 20 ML
     Route: 042
     Dates: start: 20200905, end: 20200905
  7. VINCRISTINE SULFATE. [Suspect]
     Active Substance: VINCRISTINE SULFATE
     Indication: DIFFUSE LARGE B-CELL LYMPHOMA
     Dosage: MINI R-CHOP REGIMEN, VINCRISTINE SULFATE 2 MG + 0.9% SODIUM CHLORIDE 20 ML
     Route: 042
     Dates: start: 20200905, end: 20200905
  8. MABTHERA [Suspect]
     Active Substance: RITUXIMAB
     Indication: DIFFUSE LARGE B-CELL LYMPHOMA
     Dosage: MINI R-CHOP REGIMEN, MABTHERA 0.6 G + 0.9% SODIUM CHLORIDE 100 ML
     Route: 041
     Dates: start: 20200905, end: 20200905
  9. SODIUM CHLORIDE. [Suspect]
     Active Substance: SODIUM CHLORIDE
     Indication: MEDICATION DILUTION
     Dosage: MINI R-CHOP REGIMEN, ENDOXAN 0.6 G + 0.9% SODIUM CHLORIDE 100 ML
     Route: 041
     Dates: start: 20200905, end: 20200905

REACTIONS (3)
  - Myelosuppression [Recovered/Resolved]
  - Neutrophil count decreased [Recovered/Resolved]
  - Leukopenia [Recovered/Resolved]

NARRATIVE: CASE EVENT DATE: 20200913
